FAERS Safety Report 11390191 (Version 1)
Quarter: 2015Q3

REPORT INFORMATION
  Report Type: Spontaneous
  Country: US (occurrence: None)
  Receive Date: 20150814
  Receipt Date: 20150814
  Transmission Date: 20151125
  Serious: No
  Sender: FDA-Public Use
  Company Number: 1713747-2015-999247

PATIENT
  Age: 45 Year
  Sex: Female
  Weight: 58 kg

DRUGS (19)
  1. RYBIX ODT [Concomitant]
     Active Substance: TRAMADOL HYDROCHLORIDE
  2. FERROUS SULFATE [Concomitant]
     Active Substance: FERROUS SULFATE\FERROUS SULFATE, DRIED
  3. ERGOCALCIFEROL. [Concomitant]
     Active Substance: ERGOCALCIFEROL
  4. HYDRALAZINE [Concomitant]
     Active Substance: HYDRALAZINE HYDROCHLORIDE
  5. RENVELA [Concomitant]
     Active Substance: SEVELAMER CARBONATE
  6. DELFLEX [Suspect]
     Active Substance: CALCIUM CHLORIDE\DEXTROSE MONOHYDRATE\MAGNESIUM CHLORIDE\SODIUM CHLORIDE\SODIUM LACTATE
     Indication: PERITONEAL DIALYSIS
     Route: 033
  7. PD DEFLEX SOLUTION [Concomitant]
  8. LISINPRIL [Concomitant]
  9. VITAMIN [Concomitant]
     Active Substance: VITAMINS
  10. CALCITRIOL. [Concomitant]
     Active Substance: CALCITRIOL
  11. METOPROLOL TARTRATE. [Concomitant]
     Active Substance: METOPROLOL TARTRATE
  12. LIBERTY CYCLER CASSETTE [Concomitant]
     Active Substance: DEVICE
  13. CARDIZEM CD [Concomitant]
     Active Substance: DILTIAZEM HYDROCHLORIDE
  14. COLACE [Concomitant]
     Active Substance: DOCUSATE SODIUM
  15. IMURAN [Concomitant]
     Active Substance: AZATHIOPRINE
  16. LIQUACEL [Concomitant]
  17. PHENERGAN [Concomitant]
     Active Substance: PROMETHAZINE HYDROCHLORIDE
  18. SYNTHROID [Concomitant]
     Active Substance: LEVOTHYROXINE SODIUM
  19. PHOSLO [Concomitant]
     Active Substance: CALCIUM ACETATE

REACTIONS (1)
  - Peritonitis bacterial [None]

NARRATIVE: CASE EVENT DATE: 201507
